FAERS Safety Report 7638700-2 (Version None)
Quarter: 2011Q3

REPORT INFORMATION
  Report Type: 
  Country: None (occurrence: None)
  Receive Date: 20110720
  Receipt Date: 20110706
  Transmission Date: 20111222
  Serious: Yes (Death, Other)
  Sender: FDA-Public Use
  Company Number: 2011AP001423

PATIENT
  Age: 2 Month
  Sex: Female

DRUGS (2)
  1. ESCITALOPRAM [Suspect]
     Indication: PRODUCT USED FOR UNKNOWN INDICATION
     Dosage: 20 MG, TRPL, QD
     Route: 064
  2. CITALOPRAM HYDROBROMIDE [Suspect]
     Indication: PRODUCT USED FOR UNKNOWN INDICATION
     Dosage: 20 MG, QD, TRPL
     Route: 064

REACTIONS (3)
  - CONGENITAL PULMONARY VALVE ATRESIA [None]
  - DEATH NEONATAL [None]
  - MATERNAL DRUGS AFFECTING FOETUS [None]
